FAERS Safety Report 4750984-7 (Version None)
Quarter: 2005Q3

REPORT INFORMATION
  Report Type: 
  Country: None (occurrence: None)
  Receive Date: 20050822
  Receipt Date: 20050808
  Transmission Date: 20060218
  Serious: Yes (Other)
  Sender: FDA-Public Use
  Company Number: 2005112700

PATIENT
  Age: 4 Year
  Sex: Female
  Weight: 14.5151 kg

DRUGS (1)
  1. BENADRYL [Suspect]
     Indication: DRUG ERUPTION
     Dosage: 1.25 - 1.5 TSP 4-5X DAILY, ORAL
     Route: 048
     Dates: start: 20050806, end: 20050808

REACTIONS (8)
  - COUGH [None]
  - FEELING ABNORMAL [None]
  - HALLUCINATION, VISUAL [None]
  - INSOMNIA [None]
  - PERSONALITY CHANGE [None]
  - PYREXIA [None]
  - STARING [None]
  - THROAT IRRITATION [None]
